FAERS Safety Report 8875873 (Version 1)
Quarter: 2012Q4

REPORT INFORMATION
  Report Type: 
  Country: BR (occurrence: BR)
  Receive Date: 20121023
  Receipt Date: 20121023
  Transmission Date: 20130627
  Serious: Yes (Other)
  Sender: FDA-Public Use
  Company Number: BR-PFIZER INC-2012185458

PATIENT
  Age: 79 Year
  Sex: Female

DRUGS (11)
  1. ATENOLOL [Suspect]
     Indication: HYPERTENSION
     Dosage: 50 mg, 2x/day
     Route: 048
  2. CANDESARTAN CILEXETIL [Suspect]
     Indication: HYPERTENSION
     Dosage: 16 mg, daily
     Route: 048
  3. CANDESARTAN CILEXETIL [Suspect]
     Dosage: 16 mg, daily
     Route: 048
     Dates: end: 20120721
  4. CANDESARTAN CILEXETIL [Suspect]
     Dosage: 16 mg, daily
     Route: 048
  5. CANDESARTAN CILEXETIL [Suspect]
     Dosage: 16 mg, UNK
     Route: 048
  6. ADALAT [Concomitant]
     Dosage: UNK
     Route: 048
  7. ASPIRINA [Concomitant]
     Dosage: UNK
     Route: 048
  8. GLIFAGE [Concomitant]
     Dosage: UNK
     Route: 048
  9. LIPITOR [Concomitant]
     Dosage: UNK
     Route: 048
  10. PLAVIX [Concomitant]
     Dosage: UNK
     Route: 048
  11. VASTAREL [Concomitant]
     Dosage: UNK
     Route: 048

REACTIONS (1)
  - Coronary artery occlusion [Unknown]
